FAERS Safety Report 5065912-7 (Version None)
Quarter: 2006Q3

REPORT INFORMATION
  Report Type: 
  Country: None (occurrence: None)
  Receive Date: 20060728
  Receipt Date: 20060728
  Transmission Date: 20061208
  Serious: Yes (Life-Threatening, Hospitalization)
  Sender: FDA-Public Use
  Company Number: None

PATIENT
  Age: 37 Year
  Sex: Male
  Weight: 106.5953 kg

DRUGS (1)
  1. BENAZEPRIL HYDROCHLORIDE [Suspect]
     Indication: HYPERTENSION
     Dosage: 20 MG DAILY PO
     Route: 048
     Dates: start: 20060724, end: 20060726

REACTIONS (5)
  - GASTROINTESTINAL HAEMORRHAGE [None]
  - INTUBATION COMPLICATION [None]
  - LARYNGOSPASM [None]
  - LARYNGOTRACHEAL OEDEMA [None]
  - POST PROCEDURAL COMPLICATION [None]
